FAERS Safety Report 6792967-1 (Version None)
Quarter: 2010Q2

REPORT INFORMATION
  Report Type: 
  Country: None (occurrence: None)
  Receive Date: 20100624
  Receipt Date: 20081223
  Transmission Date: 20101027
  Serious: No
  Sender: FDA-Public Use
  Company Number: US-PFIZER INC-2008081579

PATIENT
  Sex: Female

DRUGS (2)
  1. XALATAN [Suspect]
     Dosage: 1 GTT, 1X/DAY
     Route: 031
     Dates: start: 20060719
  2. XALATAN [Suspect]
     Dates: start: 20060719

REACTIONS (3)
  - EXPIRED DRUG ADMINISTERED [None]
  - EYE PAIN [None]
  - PHOTOPHOBIA [None]
